FAERS Safety Report 5956563-8 (Version None)
Quarter: 2008Q4

REPORT INFORMATION
  Report Type: 
  Country: None (occurrence: None)
  Receive Date: 20081103
  Receipt Date: 20080916
  Transmission Date: 20090506
  Serious: Yes (Other)
  Sender: FDA-Public Use
  Company Number: DSA_32276_2008

PATIENT
  Sex: Female

DRUGS (15)
  1. ATIVAN [Suspect]
     Indication: ANXIETY
     Dosage: (2.5 MG QD, AT BEDTIME), (1.5 MG QD, AT BEDTIME), (0.5 MG QID ORAL)
     Route: 048
     Dates: end: 20080101
  2. ATIVAN [Suspect]
     Indication: NIGHTMARE
     Dosage: (2.5 MG QD, AT BEDTIME), (1.5 MG QD, AT BEDTIME), (0.5 MG QID ORAL)
     Route: 048
     Dates: end: 20080101
  3. ATIVAN [Suspect]
     Indication: SLEEP DISORDER
     Dosage: (2.5 MG QD, AT BEDTIME), (1.5 MG QD, AT BEDTIME), (0.5 MG QID ORAL)
     Route: 048
     Dates: end: 20080101
  4. ATIVAN [Suspect]
     Indication: ANXIETY
     Dosage: (2.5 MG QD, AT BEDTIME), (1.5 MG QD, AT BEDTIME), (0.5 MG QID ORAL)
     Route: 048
     Dates: start: 20080101
  5. ATIVAN [Suspect]
     Indication: NIGHTMARE
     Dosage: (2.5 MG QD, AT BEDTIME), (1.5 MG QD, AT BEDTIME), (0.5 MG QID ORAL)
     Route: 048
     Dates: start: 20080101
  6. ATIVAN [Suspect]
     Indication: SLEEP DISORDER
     Dosage: (2.5 MG QD, AT BEDTIME), (1.5 MG QD, AT BEDTIME), (0.5 MG QID ORAL)
     Route: 048
     Dates: start: 20080101
  7. ATIVAN [Suspect]
     Indication: ANXIETY
     Dosage: (2.5 MG QD, AT BEDTIME), (1.5 MG QD, AT BEDTIME), (0.5 MG QID ORAL)
     Route: 048
     Dates: start: 20080101
  8. ATIVAN [Suspect]
     Indication: NIGHTMARE
     Dosage: (2.5 MG QD, AT BEDTIME), (1.5 MG QD, AT BEDTIME), (0.5 MG QID ORAL)
     Route: 048
     Dates: start: 20080101
  9. ATIVAN [Suspect]
     Indication: SLEEP DISORDER
     Dosage: (2.5 MG QD, AT BEDTIME), (1.5 MG QD, AT BEDTIME), (0.5 MG QID ORAL)
     Route: 048
     Dates: start: 20080101
  10. AMBIEN [Suspect]
     Indication: SLEEP DISORDER
     Dosage: (12.5 MG QD, DRUG TAKEN AT BEDTIME ORAL)
     Route: 048
     Dates: start: 19980101
  11. PREGABALIN [Concomitant]
  12. DICLOFENAC SODIUM [Concomitant]
  13. GABAPENTIN [Concomitant]
  14. ALENDRONATE SODIUM [Concomitant]
  15. LUNESTA [Concomitant]

REACTIONS (5)
  - CATARACT [None]
  - DRUG INTERACTION [None]
  - FALL [None]
  - MEMORY IMPAIRMENT [None]
  - SUICIDAL IDEATION [None]
